FAERS Safety Report 7027793-1 (Version None)
Quarter: 2010Q4

REPORT INFORMATION
  Report Type: 
  Country: None (occurrence: None)
  Receive Date: 20101005
  Receipt Date: 20100521
  Transmission Date: 20110411
  Serious: Yes (Other)
  Sender: FDA-Public Use
  Company Number: US-BAYER-201023448NA

PATIENT
  Age: 30 Year
  Sex: Female

DRUGS (1)
  1. MIRENA [Suspect]
     Indication: CONTRACEPTION
     Dosage: FREQUENCY CONTINUOUS
     Route: 015
     Dates: start: 20091001

REACTIONS (6)
  - AMENORRHOEA [None]
  - BREAST PAIN [None]
  - DEVICE DISLOCATION [None]
  - FIBROCYSTIC BREAST DISEASE [None]
  - OVARIAN CYST [None]
  - VAGINAL HAEMORRHAGE [None]
